FAERS Safety Report 9455464 (Version 1)
Quarter: 2013Q3

REPORT INFORMATION
  Report Type: Spontaneous
  Country: US (occurrence: US)
  Receive Date: 20130813
  Receipt Date: 20130813
  Transmission Date: 20140515
  Serious: No
  Sender: FDA-Public Use
  Company Number: US-B.I. PHARMACEUTICALS,INC./RIDGEFIELD-2013-BI-23674BP

PATIENT
  Sex: Female

DRUGS (1)
  1. CATAPRES [Suspect]

REACTIONS (1)
  - Unevaluable event [Unknown]
